FAERS Safety Report 4666481-3 (Version None)
Quarter: 2005Q2

REPORT INFORMATION
  Report Type: 
  Country: None (occurrence: None)
  Receive Date: 20050519
  Receipt Date: 20050511
  Transmission Date: 20051028
  Serious: Yes (Hospitalization)
  Sender: FDA-Public Use
  Company Number: FR-BRISTOL-MYERS SQUIBB COMPANY-12966321

PATIENT
  Age: 58 Year
  Sex: Female
  Weight: 63 kg

DRUGS (6)
  1. TAXOL [Suspect]
     Indication: BREAST CANCER
     Route: 042
     Dates: start: 20050421
  2. HERCEPTIN [Suspect]
     Indication: BREAST CANCER
     Route: 042
     Dates: start: 20050421
  3. CARBOPLATIN [Suspect]
     Indication: BREAST CANCER
     Route: 042
     Dates: start: 20050421
  4. POLARAMINE [Concomitant]
     Indication: PREMEDICATION
  5. SOLU-MEDROL [Concomitant]
     Indication: PREMEDICATION
  6. ONDANSETRON [Concomitant]
     Indication: PREMEDICATION

REACTIONS (5)
  - BLOOD PRESSURE DECREASED [None]
  - DYSAESTHESIA [None]
  - ERYTHEMA [None]
  - HYPERHIDROSIS [None]
  - SHOCK [None]
